FAERS Safety Report 5393734-6 (Version None)
Quarter: 2007Q3

REPORT INFORMATION
  Report Type: 
  Country: None (occurrence: None)
  Receive Date: 20070723
  Receipt Date: 20070716
  Transmission Date: 20080115
  Serious: Yes (Hospitalization)
  Sender: FDA-Public Use
  Company Number: AR-ASTRAZENECA-2007UW16417

PATIENT
  Age: 45 Year
  Sex: Female
  Weight: 60 kg

DRUGS (3)
  1. SYMBICORT [Suspect]
     Indication: ASTHMA
     Route: 055
     Dates: start: 20010101
  2. UNIFLOX [Concomitant]
     Indication: ANTIBIOTIC PROPHYLAXIS
     Route: 048
     Dates: start: 20070701
  3. CORTIPYREN [Concomitant]
     Indication: BRONCHOSPASM
     Dosage: HALF A TABLET
     Dates: start: 20070701

REACTIONS (3)
  - BRONCHOSPASM [None]
  - CANDIDIASIS [None]
  - INFLUENZA [None]
